FAERS Safety Report 9408893 (Version 1)
Quarter: 2013Q3

REPORT INFORMATION
  Report Type: Report from Study
  Country: CA (occurrence: CA)
  Receive Date: 20130719
  Receipt Date: 20130719
  Transmission Date: 20140515
  Serious: Yes (Other)
  Sender: FDA-Public Use
  Company Number: CA-ALEXION-A201301575

PATIENT
  Age: 45 Year
  Sex: Female
  Weight: 70 kg

DRUGS (7)
  1. SOLIRIS [Suspect]
     Indication: PAROXYSMAL NOCTURNAL HAEMOGLOBINURIA
     Dosage: 600 MG, QW
     Route: 042
     Dates: start: 20111115, end: 20111208
  2. SOLIRIS [Suspect]
     Dosage: 900 MG, Q2W
     Route: 042
     Dates: start: 20111228, end: 20120322
  3. SOLIRIS [Suspect]
     Dosage: 900 MG, Q12D
     Route: 042
     Dates: start: 20120402
  4. FOLIC ACID [Concomitant]
     Indication: PRODUCT USED FOR UNKNOWN INDICATION
     Dosage: 5 MG, QD
     Route: 048
     Dates: start: 20110902
  5. TYLENOL [Concomitant]
     Indication: PROPHYLAXIS
     Dosage: UNK
     Dates: start: 201108
  6. BENADRYL [Concomitant]
     Indication: PROPHYLAXIS
     Dosage: UNK, PRN
     Dates: start: 201108
  7. ABREVA [Concomitant]
     Indication: ORAL HERPES
     Dosage: ONE COAT APPLICATION ON LIP, PRN
     Dates: start: 20120411

REACTIONS (3)
  - Haemoglobin decreased [Recovered/Resolved]
  - Fatigue [Recovered/Resolved]
  - Palpitations [Recovered/Resolved]
